FAERS Safety Report 5630315-0 (Version None)
Quarter: 2008Q1

REPORT INFORMATION
  Report Type: 
  Country: None (occurrence: None)
  Receive Date: 20080213
  Receipt Date: 20080201
  Transmission Date: 20080703
  Serious: Yes (Other)
  Sender: FDA-Public Use
  Company Number: 2008US000434

PATIENT
  Age: 63 Year
  Sex: Male

DRUGS (2)
  1. PROGRAF [Suspect]
     Indication: LIVER TRANSPLANT
     Dosage: 1 MG, BID, ORAL
     Route: 048
  2. SIROLIMUS(SIROLIMUS) [Suspect]
     Indication: LIVER TRANSPLANT
     Dosage: 5 MG, UID/QD, ORAL
     Route: 048

REACTIONS (11)
  - ARTHRALGIA [None]
  - AUTOIMMUNE DISORDER [None]
  - BLOOD TRIGLYCERIDES INCREASED [None]
  - HEPATIC STEATOSIS [None]
  - LEUKOPENIA [None]
  - NAIL PITTING [None]
  - PEMPHIGOID [None]
  - PROTEINURIA [None]
  - PSORIASIS [None]
  - TENDERNESS [None]
  - THROMBOCYTOPENIA [None]
